FAERS Safety Report 5818838-2 (Version None)
Quarter: 2008Q3

REPORT INFORMATION
  Report Type: 
  Country: None (occurrence: None)
  Receive Date: 20080718
  Receipt Date: 20080714
  Transmission Date: 20090109
  Serious: Yes (Death, Other)
  Sender: FDA-Public Use
  Company Number: 163-21880-08051623

PATIENT
  Age: 79 Year
  Sex: Female

DRUGS (7)
  1. REVLIMID [Suspect]
     Indication: MYELODYSPLASTIC SYNDROME
     Dosage: 5 MG, DAILY FOR 21 DAYS, ORAL
     Route: 048
     Dates: start: 20071116, end: 20080101
  2. ZESTORETIC [Concomitant]
  3. PRAVACHOL [Concomitant]
  4. LEVOXYL [Concomitant]
  5. TRAVATAN [Concomitant]
  6. AZOPT (BRINZOLAMIDE) (EYE DROPS) [Concomitant]
  7. ARANESP [Concomitant]

REACTIONS (2)
  - HAEMORRHAGE INTRACRANIAL [None]
  - PLATELET COUNT DECREASED [None]
